FAERS Safety Report 6585020-3 (Version None)
Quarter: 2010Q1

REPORT INFORMATION
  Report Type: 
  Country: None (occurrence: None)
  Receive Date: 20100217
  Receipt Date: 20100206
  Transmission Date: 20100710
  Serious: Yes (Hospitalization)
  Sender: FDA-Public Use
  Company Number: JP-BAXTER-2010BH002793

PATIENT
  Age: 80 Year
  Sex: Male

DRUGS (2)
  1. EXTRANEAL [Suspect]
     Indication: RENAL FAILURE CHRONIC
     Route: 033
     Dates: start: 20090420
  2. DIANEAL PD-2 W/ DEXTROSE 1.5% [Suspect]
     Indication: RENAL FAILURE CHRONIC
     Route: 033
     Dates: start: 20090420

REACTIONS (1)
  - MYOCARDIAL INFARCTION [None]
